FAERS Safety Report 6758637-0 (Version None)
Quarter: 2010Q2

REPORT INFORMATION
  Report Type: 
  Country: None (occurrence: None)
  Receive Date: 20100607
  Receipt Date: 20100528
  Transmission Date: 20101027
  Serious: Yes (Hospitalization)
  Sender: FDA-Public Use
  Company Number: AU-ABBOTT-10P-008-0648896-00

PATIENT
  Age: 55 Year
  Sex: Male

DRUGS (2)
  1. VALPROATE SODIUM [Suspect]
     Indication: DRUG USE FOR UNKNOWN INDICATION
     Dosage: 16 X 200 MG TABLETS
  2. PANADOL EXTEND [Suspect]
     Indication: DRUG USE FOR UNKNOWN INDICATION
     Dosage: 20 X 665 MG (13.3 G)

REACTIONS (3)
  - DRUG EFFECT DELAYED [None]
  - DRUG EFFECT PROLONGED [None]
  - OVERDOSE [None]
